FAERS Safety Report 22664330 (Version 13)
Quarter: 2025Q2

REPORT INFORMATION
  Report Type: Spontaneous
  Country: US (occurrence: US)
  Receive Date: 20230703
  Receipt Date: 20250627
  Transmission Date: 20250716
  Serious: No
  Sender: PFIZER
  Company Number: US-PFIZER INC-PV202300114610

PATIENT
  Age: 85 Year
  Sex: Female
  Weight: 59 kg

DRUGS (2)
  1. IBRANCE [Suspect]
     Active Substance: PALBOCICLIB
     Indication: Breast cancer female
     Route: 048
     Dates: start: 20230721
  2. FEMARA [Concomitant]
     Active Substance: LETROZOLE
     Dates: start: 20230721

REACTIONS (1)
  - Arthritis [Not Recovered/Not Resolved]
